FAERS Safety Report 24696664 (Version 1)
Quarter: 2024Q4

REPORT INFORMATION
  Report Type: Spontaneous
  Country: DE (occurrence: DE)
  Receive Date: 20241204
  Receipt Date: 20241204
  Transmission Date: 20250115
  Serious: Yes (Life-Threatening, Hospitalization, Disabling, Other)
  Sender: MYLAN
  Company Number: DE-AstraZeneca-2022A347103

PATIENT
  Sex: Male

DRUGS (15)
  1. ATORVASTATIN [Suspect]
     Active Substance: ATORVASTATIN
     Indication: Product used for unknown indication
     Dosage: UNK
     Route: 065
  2. ASTRAZENECA COVID-19 VACCINE [Suspect]
     Active Substance: AZD-1222
     Indication: Product used for unknown indication
     Dosage: DOSE 1
     Route: 030
     Dates: start: 20210426
  3. ASTRAZENECA COVID-19 VACCINE [Suspect]
     Active Substance: AZD-1222
     Dosage: DOSE 1
     Route: 030
     Dates: start: 20210426
  4. ASTRAZENECA COVID-19 VACCINE [Suspect]
     Active Substance: AZD-1222
     Dosage: DOSE 1
     Route: 030
     Dates: start: 20210426
  5. ASTRAZENECA COVID-19 VACCINE [Suspect]
     Active Substance: AZD-1222
     Dosage: DOSE 1
     Route: 030
     Dates: start: 20210426
  6. ASTRAZENECA COVID-19 VACCINE [Suspect]
     Active Substance: AZD-1222
     Indication: Product used for unknown indication
     Dosage: DOSE 2
     Route: 030
     Dates: start: 20210719
  7. ASTRAZENECA COVID-19 VACCINE [Suspect]
     Active Substance: AZD-1222
     Dosage: DOSE 2
     Route: 030
     Dates: start: 20210719
  8. ASTRAZENECA COVID-19 VACCINE [Suspect]
     Active Substance: AZD-1222
     Dosage: DOSE 2
     Route: 030
     Dates: start: 20210719
  9. ASTRAZENECA COVID-19 VACCINE [Suspect]
     Active Substance: AZD-1222
     Dosage: DOSE 2
     Route: 030
     Dates: start: 20210719
  10. RAMIPRIL [Concomitant]
     Active Substance: RAMIPRIL
     Dosage: UNK
     Route: 065
  11. IBUPROFEN [Concomitant]
     Active Substance: IBUPROFEN
     Dosage: UNK
     Route: 065
  12. Novalgin [Concomitant]
     Dosage: UNK
     Route: 065
  13. CLOPIDOGREL [Concomitant]
     Active Substance: CLOPIDOGREL BISULFATE
     Dosage: UNK
     Route: 065
  14. NEXIUM [Concomitant]
     Active Substance: ESOMEPRAZOLE MAGNESIUM
     Dosage: UNK
     Route: 065
  15. AMLODIPINE [Concomitant]
     Active Substance: AMLODIPINE BESYLATE
     Dosage: UNK
     Route: 065

REACTIONS (18)
  - Cerebral infarction [Unknown]
  - Hypertension [Unknown]
  - Myocardial infarction [Unknown]
  - Cerebral disorder [Unknown]
  - Cerebrovascular accident [Unknown]
  - Prostate cancer [Unknown]
  - Cognitive disorder [Unknown]
  - Macroangiopathy [Unknown]
  - Exercise tolerance decreased [Unknown]
  - Loss of personal independence in daily activities [Unknown]
  - Altered state of consciousness [Unknown]
  - Haematuria [Unknown]
  - Carotid artery stenosis [Unknown]
  - Carotid artery occlusion [Unknown]
  - Hemiplegia [Unknown]
  - Dysphagia [Unknown]
  - Chronic obstructive pulmonary disease [Unknown]
  - Tobacco abuse [Unknown]
